FAERS Safety Report 19806598 (Version 1)
Quarter: 2021Q3

REPORT INFORMATION
  Report Type: Spontaneous
  Country: BR (occurrence: BR)
  Receive Date: 20210908
  Receipt Date: 20210908
  Transmission Date: 20211014
  Serious: Yes (Other)
  Sender: FDA-Public Use
  Company Number: BR-ASTRAZENECA-2021A717045

PATIENT
  Age: 40 Year
  Sex: Female

DRUGS (2)
  1. OLAPARIB. [Suspect]
     Active Substance: OLAPARIB
     Route: 048
     Dates: start: 20210624, end: 2021
  2. OLAPARIB. [Suspect]
     Active Substance: OLAPARIB
     Route: 048
     Dates: start: 2021, end: 2021

REACTIONS (2)
  - Encephalopathy [Unknown]
  - Incorrect dose administered [Unknown]

NARRATIVE: CASE EVENT DATE: 2021
